FAERS Safety Report 23102457 (Version 4)
Quarter: 2024Q3

REPORT INFORMATION
  Report Type: Spontaneous
  Country: DE (occurrence: DE)
  Receive Date: 20231025
  Receipt Date: 20240718
  Transmission Date: 20241016
  Serious: Yes (Hospitalization, Other)
  Sender: SANOFI AVENTIS
  Company Number: FR-SA-96007123

PATIENT
  Age: 52 Year
  Sex: Male

DRUGS (9)
  1. RIFAMPIN [Interacting]
     Active Substance: RIFAMPIN
     Indication: Renal tuberculosis
     Dosage: UNK
     Dates: start: 199404
  2. RIFAMPIN [Interacting]
     Active Substance: RIFAMPIN
     Indication: Tuberculosis ureter
  3. ACETAMINOPHEN [Suspect]
     Active Substance: ACETAMINOPHEN
     Dosage: UNK
     Dates: start: 199404
  4. ETHAMBUTOL [Concomitant]
     Active Substance: ETHAMBUTOL HYDROCHLORIDE
     Indication: Renal tuberculosis
     Dosage: UNK
     Dates: start: 199404
  5. ETHAMBUTOL [Concomitant]
     Active Substance: ETHAMBUTOL HYDROCHLORIDE
     Indication: Tuberculosis ureter
  6. PYRAZINAMIDE [Concomitant]
     Active Substance: PYRAZINAMIDE
     Indication: Renal tuberculosis
     Dosage: UNK
     Dates: start: 199404
  7. PYRAZINAMIDE [Concomitant]
     Active Substance: PYRAZINAMIDE
     Indication: Tuberculosis ureter
  8. ISONIAZID [Concomitant]
     Active Substance: ISONIAZID
     Indication: Renal tuberculosis
     Dosage: UNK
     Dates: start: 199404
  9. ISONIAZID [Concomitant]
     Active Substance: ISONIAZID
     Indication: Tuberculosis ureter

REACTIONS (8)
  - Addison^s disease [Recovered/Resolved]
  - Adrenal insufficiency [Recovered/Resolved]
  - Asthenia [Recovered/Resolved]
  - Abdominal pain [Recovered/Resolved]
  - Nausea [Recovered/Resolved]
  - Vomiting [Recovered/Resolved]
  - Skin discolouration [Recovered/Resolved]
  - Hyperkalaemia [Recovered/Resolved]

NARRATIVE: CASE EVENT DATE: 19940401
